FAERS Safety Report 9773326 (Version 1)
Quarter: 2013Q4

REPORT INFORMATION
  Report Type: Spontaneous
  Country: US (occurrence: US)
  Receive Date: 20131219
  Receipt Date: 20131219
  Transmission Date: 20140711
  Serious: Yes (Other)
  Sender: FDA-Public Use
  Company Number: US-ABBVIE-13P-163-1180782-00

PATIENT
  Sex: Male

DRUGS (3)
  1. ANDROGEL 1% [Suspect]
     Indication: BLOOD TESTOSTERONE DECREASED
     Route: 061
     Dates: start: 2011, end: 201304
  2. TESTOSTERONE [Suspect]
     Indication: BLOOD TESTOSTERONE DECREASED
     Route: 050
     Dates: start: 201304
  3. TESTOSTERONE [Suspect]
     Route: 050
     Dates: start: 2013, end: 20131106

REACTIONS (5)
  - Thrombosis [Not Recovered/Not Resolved]
  - Pain in extremity [Recovered/Resolved]
  - Fatigue [Not Recovered/Not Resolved]
  - Feeling abnormal [Not Recovered/Not Resolved]
  - Muscle atrophy [Not Recovered/Not Resolved]
